APPROVED DRUG PRODUCT: NEOMYCIN AND POLYMYXIN B SULFATES AND GRAMICIDIN
Active Ingredient: GRAMICIDIN; NEOMYCIN SULFATE; POLYMYXIN B SULFATE
Strength: 0.025MG/ML;EQ 1.75MG BASE/ML;10,000 UNITS/ML
Dosage Form/Route: SOLUTION/DROPS;OPHTHALMIC
Application: A062818 | Product #001
Applicant: IPHARM DIV LYPHOMED INC
Approved: Oct 11, 1988 | RLD: No | RS: No | Type: DISCN